FAERS Safety Report 12296755 (Version 1)
Quarter: 2016Q2

REPORT INFORMATION
  Report Type: Report from Study
  Country: JP (occurrence: JP)
  Receive Date: 20160422
  Receipt Date: 20160422
  Transmission Date: 20160815
  Serious: Yes (Death)
  Sender: FDA-Public Use
  Company Number: JP-CELGENEUS-JPN-2015106277

PATIENT
  Age: 77 Year
  Sex: Male

DRUGS (8)
  1. LANSOPRAZOLE. [Concomitant]
     Active Substance: LANSOPRAZOLE
     Indication: PRODUCT USED FOR UNKNOWN INDICATION
     Route: 048
  2. POMALYST [Suspect]
     Active Substance: POMALIDOMIDE
     Route: 048
     Dates: start: 20150701, end: 20150714
  3. DEXAMETHASONE. [Suspect]
     Active Substance: DEXAMETHASONE
     Route: 041
     Dates: start: 20150730, end: 20150807
  4. POMALYST [Suspect]
     Active Substance: POMALIDOMIDE
     Indication: PLASMA CELL MYELOMA
     Route: 048
     Dates: start: 20150622, end: 20150630
  5. DEXAMETHASONE. [Suspect]
     Active Substance: DEXAMETHASONE
     Indication: PLASMA CELL MYELOMA
     Route: 065
     Dates: start: 20150424, end: 20150526
  6. BAYASPIRIN [Concomitant]
     Active Substance: ASPIRIN
     Indication: PROPHYLAXIS
     Route: 048
     Dates: start: 20150622, end: 20150807
  7. DEXAMETHASONE. [Suspect]
     Active Substance: DEXAMETHASONE
     Route: 041
     Dates: start: 20150622, end: 20150714
  8. POMALYST [Suspect]
     Active Substance: POMALIDOMIDE
     Dosage: 100 MILLIGRAM
     Route: 048
     Dates: start: 20150730, end: 20150807

REACTIONS (3)
  - Blood albumin decreased [Not Recovered/Not Resolved]
  - Pneumonia [Fatal]
  - Systemic mycosis [Not Recovered/Not Resolved]

NARRATIVE: CASE EVENT DATE: 20150701
